FAERS Safety Report 16403538 (Version 7)
Quarter: 2019Q3

REPORT INFORMATION
  Report Type: Spontaneous
  Country: PT (occurrence: PT)
  Receive Date: 20190607
  Receipt Date: 20190820
  Transmission Date: 20191004
  Serious: Yes (Other)
  Sender: FDA-Public Use
  Company Number: PT-AUROBINDO-AUR-APL-2019-030242

PATIENT

DRUGS (2)
  1. METFORMIN [Suspect]
     Active Substance: METFORMIN HYDROCHLORIDE
     Indication: DIABETES MELLITUS
     Dosage: UNK
     Route: 065
  2. SIMVASTATIN FILM-COATED TABLET [Interacting]
     Active Substance: SIMVASTATIN
     Indication: PRODUCT USED FOR UNKNOWN INDICATION
     Dosage: UNK
     Route: 065

REACTIONS (9)
  - Mean cell volume abnormal [Unknown]
  - Memory impairment [Unknown]
  - Helicobacter infection [Unknown]
  - Disturbance in attention [Unknown]
  - Vitamin B12 deficiency [Unknown]
  - Malabsorption [Unknown]
  - Asthenia [Unknown]
  - Chronic gastritis [Unknown]
  - Drug interaction [Unknown]
